FAERS Safety Report 10295682 (Version 2)
Quarter: 2014Q3

REPORT INFORMATION
  Report Type: Spontaneous
  Country: JP (occurrence: JP)
  Receive Date: 20140710
  Receipt Date: 20140721
  Transmission Date: 20150326
  Serious: Yes (Hospitalization, Other)
  Sender: FDA-Public Use
  Company Number: JP-ELI_LILLY_AND_COMPANY-JP201406009894

PATIENT
  Age: 80 Year
  Sex: Male

DRUGS (1)
  1. GEMZAR [Suspect]
     Active Substance: GEMCITABINE HYDROCHLORIDE
     Indication: BLADDER CANCER
     Dosage: UNK
     Route: 042
     Dates: start: 20140514, end: 2014

REACTIONS (2)
  - Sepsis [Unknown]
  - Epilepsy [Unknown]

NARRATIVE: CASE EVENT DATE: 20140628
